FAERS Safety Report 8914584 (Version 2)
Quarter: 2013Q1

REPORT INFORMATION
  Report Type: Report from Study
  Country: US (occurrence: US)
  Receive Date: 20121119
  Receipt Date: 20130108
  Transmission Date: 20140127
  Serious: Yes (Life-Threatening, Hospitalization)
  Sender: FDA-Public Use
  Company Number: US-ROCHE-1154800

PATIENT
  Age: 64 Year
  Sex: Female
  Weight: 59 kg

DRUGS (4)
  1. TRASTUZUMAB [Suspect]
     Indication: BREAST CANCER
     Route: 042
     Dates: start: 20120523
  2. TRASTUZUMAB [Suspect]
     Dosage: CYCLE 8, LAST DOSE PRIOR TO SAE: 26/SEP/2012
     Route: 042
     Dates: start: 20120919
  3. PACLITAXEL [Suspect]
     Indication: BREAST CANCER
     Dosage: OVER 60 MIN.
     Route: 042
     Dates: start: 20120523
  4. PACLITAXEL [Suspect]
     Dosage: CYCLE 8, LAST DOSE PRIOR TO SAE: 26/SEP/2012
     Route: 042
     Dates: start: 20120919

REACTIONS (1)
  - Sepsis [Recovered/Resolved with Sequelae]
